FAERS Safety Report 24985812 (Version 1)
Quarter: 2025Q1

REPORT INFORMATION
  Report Type: Spontaneous
  Country: DE (occurrence: DE)
  Receive Date: 20250219
  Receipt Date: 20250219
  Transmission Date: 20250409
  Serious: Yes (Hospitalization)
  Sender: FRESENIUS KABI
  Company Number: DE-ROCHE-10000186635

PATIENT
  Age: 71 Year
  Sex: Male
  Weight: 60 kg

DRUGS (5)
  1. LEUCOVORIN [Suspect]
     Active Substance: LEUCOVORIN\LEUCOVORIN CALCIUM
     Indication: Gastrooesophageal cancer
     Dosage: HE RECEIVED LAST DOSE PRIOR TO AE ON 17-JAN-2025 (370 MG)?FOA - INFUSION
     Route: 042
     Dates: start: 20240829
  2. OXALIPLATIN [Suspect]
     Active Substance: OXALIPLATIN
     Indication: Gastrooesophageal cancer
     Dosage: HE RECEIVED LAST DOSE PRIOR TO AE ON 17-JAN-2025 (115 MG)?FOA - INFUSION
     Route: 042
     Dates: start: 20240829
  3. ATEZOLIZUMAB [Suspect]
     Active Substance: ATEZOLIZUMAB
     Indication: Gastrooesophageal cancer
     Dosage: HE RECEIVED LAST DOSE PRIOR TO AE ON 17-JAN-2025?PLANNED DOSE: 840 MG (C1-C8)/1200MG (C9-C16)?FOA -
     Route: 042
     Dates: start: 20240829
  4. DOCETAXEL [Suspect]
     Active Substance: DOCETAXEL
     Indication: Gastrooesophageal cancer
     Dosage: HE RECEIVED LAST DOSE PRIOR TO AE ON 17-JAN-2025 (70 MG)?FOA- INFUSION
     Route: 042
     Dates: start: 20240829
  5. FLUOROURACIL [Suspect]
     Active Substance: FLUOROURACIL
     Indication: Gastrooesophageal cancer
     Route: 042
     Dates: start: 20240829

REACTIONS (2)
  - Pneumonia [Recovered/Resolved]
  - Pneumonitis [Recovering/Resolving]

NARRATIVE: CASE EVENT DATE: 20250118
